FAERS Safety Report 9407071 (Version 2)
Quarter: 2013Q3

REPORT INFORMATION
  Report Type: Spontaneous
  Country: RO (occurrence: RO)
  Receive Date: 20130718
  Receipt Date: 20130722
  Transmission Date: 20140515
  Serious: Yes (Other)
  Sender: FDA-Public Use
  Company Number: RO-JNJFOC-20130710374

PATIENT
  Sex: 0

DRUGS (9)
  1. TRAMADOL HYDROCHLORIDE [Suspect]
     Indication: POSTOPERATIVE ANALGESIA
     Route: 042
  2. TRAMADOL HYDROCHLORIDE [Suspect]
     Indication: POSTOPERATIVE ANALGESIA
     Route: 042
  3. PARACETAMOL [Suspect]
     Indication: POSTOPERATIVE ANALGESIA
     Route: 065
  4. PETHIDINE [Suspect]
     Indication: PRODUCT USED FOR UNKNOWN INDICATION
     Route: 042
  5. METAMIZOL [Suspect]
     Indication: POSTOPERATIVE ANALGESIA
     Route: 065
  6. DEXKETOPROFEN [Suspect]
     Indication: POSTOPERATIVE ANALGESIA
     Route: 065
  7. KETAMINE [Suspect]
     Indication: PRODUCT USED FOR UNKNOWN INDICATION
     Route: 042
  8. KETAMINE [Suspect]
     Indication: PRODUCT USED FOR UNKNOWN INDICATION
     Route: 042
  9. KETAMINE [Suspect]
     Indication: PRODUCT USED FOR UNKNOWN INDICATION
     Route: 042

REACTIONS (7)
  - Diplopia [Unknown]
  - Adverse drug reaction [Unknown]
  - Nausea [Unknown]
  - Vomiting [Unknown]
  - Respiratory depression [Unknown]
  - Sedation [Unknown]
  - Cognitive disorder [Unknown]
